APPROVED DRUG PRODUCT: A-METHAPRED
Active Ingredient: METHYLPREDNISOLONE SODIUM SUCCINATE
Strength: EQ 40MG BASE/VIAL
Dosage Form/Route: INJECTABLE;INJECTION
Application: A089573 | Product #001
Applicant: ABBOTT LABORATORIES HOSP PRODUCTS DIV
Approved: Feb 22, 1991 | RLD: No | RS: No | Type: DISCN